FAERS Safety Report 10385369 (Version 2)
Quarter: 2014Q3

REPORT INFORMATION
  Report Type: Spontaneous
  Country: DE (occurrence: DE)
  Receive Date: 20140814
  Receipt Date: 20140911
  Transmission Date: 20150326
  Serious: Yes (Death, Hospitalization, Other)
  Sender: FDA-Public Use
  Company Number: DE-TEVA-499773GER

PATIENT
  Age: 50 Year
  Sex: Female
  Weight: 45 kg

DRUGS (8)
  1. LAIF 900 [Concomitant]
     Indication: DEPRESSION
     Dosage: 900 MILLIGRAM DAILY;
     Route: 048
     Dates: start: 2013
  2. JODTHYROX [Concomitant]
     Active Substance: LEVOTHYROXINE SODIUM\POTASSIUM IODIDE
     Indication: GOITRE
     Route: 048
     Dates: start: 2013
  3. ALENDRONIC ACID [Concomitant]
     Active Substance: ALENDRONIC ACID
  4. GRANOCYTE [Concomitant]
     Active Substance: LENOGRASTIM
     Dates: start: 20140722
  5. MITOXANTRONE [Suspect]
     Active Substance: MITOXANTRONE HYDROCHLORIDE
     Indication: MULTIPLE SCLEROSIS RELAPSE
     Dosage: 6 MG/M2 BODY SURFACE / TOTAL DOSE: 84 MG/M2
     Route: 042
     Dates: start: 20140716, end: 20140716
  6. FAMPYRA [Concomitant]
     Active Substance: DALFAMPRIDINE
     Dosage: 20 MILLIGRAM DAILY;
     Route: 048
     Dates: start: 201302
  7. KENTERA [Concomitant]
     Route: 062
  8. CALCIUM D3 [Concomitant]
     Active Substance: CALCIUM\CHOLECALCIFEROL

REACTIONS (6)
  - Agranulocytosis [Fatal]
  - Thrombocytopenia [Fatal]
  - Subarachnoid haemorrhage [Fatal]
  - Spontaneous haematoma [Fatal]
  - Leukopenia [Fatal]
  - Petechiae [Fatal]

NARRATIVE: CASE EVENT DATE: 201407
